FAERS Safety Report 17527692 (Version 1)
Quarter: 2020Q1

REPORT INFORMATION
  Report Type: Spontaneous
  Country: HK (occurrence: HK)
  Receive Date: 20200311
  Receipt Date: 20200311
  Transmission Date: 20200409
  Serious: Yes (Other)
  Sender: FDA-Public Use
  Company Number: HK-PFIZER INC-2020095201

PATIENT
  Age: 79 Year
  Sex: Female

DRUGS (3)
  1. BUPIVACAINE. [Suspect]
     Active Substance: BUPIVACAINE
     Indication: POSTOPERATIVE ANALGESIA
     Dosage: UNK(EPIDURAL INFUSION)
     Route: 008
  2. FENTANYL. [Suspect]
     Active Substance: FENTANYL
     Indication: POSTOPERATIVE ANALGESIA
     Dosage: UNK (EPIDURAL INFUSION)
     Route: 008
  3. HEPARIN SODIUM. [Suspect]
     Active Substance: HEPARIN SODIUM
     Dosage: 3000 IU, SINGLE (AT LEAST 60 MIN)
     Route: 042

REACTIONS (2)
  - Spinal cord compression [Recovering/Resolving]
  - Extradural haematoma [Recovering/Resolving]
